FAERS Safety Report 6309227-5 (Version None)
Quarter: 2009Q3

REPORT INFORMATION
  Report Type: 
  Country: None (occurrence: None)
  Receive Date: 20090814
  Receipt Date: 20090804
  Transmission Date: 20100115
  Serious: Yes (Other)
  Sender: FDA-Public Use
  Company Number: JP-PFIZER INC-2009237364

PATIENT
  Age: 76 Year

DRUGS (2)
  1. ZYVOX [Suspect]
     Indication: STAPHYLOCOCCAL INFECTION
     Dosage: 600 MG, 2X/DAY
     Route: 042
     Dates: start: 20090613, end: 20090622
  2. ZYVOX [Suspect]
     Dosage: UNK
     Dates: start: 20090628

REACTIONS (1)
  - HALLUCINATION [None]
